FAERS Safety Report 6145081-2 (Version None)
Quarter: 2009Q2

REPORT INFORMATION
  Report Type: 
  Country: None (occurrence: None)
  Receive Date: 20090406
  Receipt Date: 20090128
  Transmission Date: 20091009
  Serious: No
  Sender: FDA-Public Use
  Company Number: A0758134A

PATIENT
  Age: 70 Year
  Sex: Male

DRUGS (5)
  1. ADVAIR HFA [Suspect]
     Dosage: 2PUFF TWICE PER DAY
     Route: 055
     Dates: start: 20080630
  2. FEXOFENADINE [Concomitant]
  3. ALPRAZOLAM [Concomitant]
  4. FLUTICASONE PROPIONATE [Concomitant]
  5. PROVENTIL-HFA [Concomitant]

REACTIONS (2)
  - OROPHARYNGEAL PAIN [None]
  - PRODUCT QUALITY ISSUE [None]
